FAERS Safety Report 14227261 (Version 1)
Quarter: 2017Q4

REPORT INFORMATION
  Report Type: Not Available
  Country: US (occurrence: US)
  Receive Date: 20171127
  Receipt Date: 20171127
  Transmission Date: 20180321
  Serious: No
  Sender: FDA-Public Use
  Company Number: US-NEUROCRINE BIOSCIENCES INC.-2017NBI01331

PATIENT
  Age: 59 Year
  Sex: Female

DRUGS (1)
  1. INGREZZA [Suspect]
     Active Substance: VALBENAZINE
     Indication: PRODUCT USED FOR UNKNOWN INDICATION
     Route: 048
     Dates: start: 20171011, end: 20171018

REACTIONS (3)
  - Vomiting [Unknown]
  - Insomnia [Unknown]
  - Dizziness [Unknown]

NARRATIVE: CASE EVENT DATE: 20171012
